FAERS Safety Report 26097062 (Version 1)
Quarter: 2025Q4

REPORT INFORMATION
  Report Type: Spontaneous
  Country: EU (occurrence: EU)
  Receive Date: 20251127
  Receipt Date: 20251127
  Transmission Date: 20260118
  Serious: Yes (Other)
  Sender: AUROBINDO
  Company Number: EU-AEMPS-1775855

PATIENT
  Age: 57 Year
  Sex: Female

DRUGS (1)
  1. AMOXICILLIN [Suspect]
     Active Substance: AMOXICILLIN
     Indication: Dental implantation
     Dosage: 850 MILLIGRAM
     Route: 065

REACTIONS (2)
  - Laryngeal oedema [Unknown]
  - Erythema [Unknown]

NARRATIVE: CASE EVENT DATE: 20220101
